FAERS Safety Report 6145215-X (Version None)
Quarter: 2009Q2

REPORT INFORMATION
  Report Type: 
  Country: None (occurrence: None)
  Receive Date: 20090401
  Receipt Date: 20090330
  Transmission Date: 20091009
  Serious: Yes (Other)
  Sender: FDA-Public Use
  Company Number: GXKR2009DE02362

PATIENT
  Sex: Female
  Weight: 70 kg

DRUGS (1)
  1. SIMVAHEXAL (NGX) (SIMVASTATIN) FILM-COATED TABLET, 40MG [Suspect]
     Dosage: 40 MG, ORAL
     Route: 048

REACTIONS (3)
  - ABDOMINAL PAIN [None]
  - NAUSEA [None]
  - SYNCOPE [None]
